FAERS Safety Report 25172999 (Version 1)
Quarter: 2025Q2

REPORT INFORMATION
  Report Type: Spontaneous
  Country: PL (occurrence: PL)
  Receive Date: 20250408
  Receipt Date: 20250408
  Transmission Date: 20250717
  Serious: Yes (Life-Threatening, Other)
  Sender: SANOFI AVENTIS
  Company Number: None

PATIENT
  Age: 42 Year
  Sex: Male
  Weight: 90 kg

DRUGS (5)
  1. ZOLPIDEM TARTRATE [Suspect]
     Active Substance: ZOLPIDEM TARTRATE
     Route: 048
     Dates: start: 20210719, end: 20210719
  2. MIDAZOLAM [Suspect]
     Active Substance: MIDAZOLAM
     Route: 048
     Dates: start: 20210719, end: 20210719
  3. ESCITALOPRAM OXALATE [Suspect]
     Active Substance: ESCITALOPRAM OXALATE
     Route: 048
     Dates: start: 20210719, end: 20210719
  4. ALPRAZOLAM [Suspect]
     Active Substance: ALPRAZOLAM
     Route: 048
     Dates: start: 20210719, end: 20210719
  5. MIANSERIN [Suspect]
     Active Substance: MIANSERIN
     Route: 048
     Dates: start: 20210719, end: 20210719

REACTIONS (4)
  - Somnolence [Recovering/Resolving]
  - Loss of consciousness [Recovering/Resolving]
  - Toxicity to various agents [Recovering/Resolving]
  - Suicide attempt [Recovering/Resolving]
